FAERS Safety Report 22221353 (Version 2)
Quarter: 2023Q2

REPORT INFORMATION
  Report Type: Spontaneous
  Country: US (occurrence: US)
  Receive Date: 20230418
  Receipt Date: 20230504
  Transmission Date: 20230722
  Serious: No
  Sender: FDA-Public Use
  Company Number: US-TEVA-2023-US-2875810

PATIENT
  Age: 40 Year
  Sex: Female

DRUGS (1)
  1. BUSPIRONE HYDROCHLORIDE [Suspect]
     Active Substance: BUSPIRONE HYDROCHLORIDE
     Indication: Anxiety
     Dosage: 45 MILLIGRAM DAILY; 15 MILLIGRAM
     Route: 065
     Dates: start: 2019

REACTIONS (7)
  - Abdominal distension [Unknown]
  - Muscle spasms [Unknown]
  - Flatulence [Unknown]
  - Abdominal pain upper [Unknown]
  - Lactose intolerance [Unknown]
  - Gastrointestinal disorder [Unknown]
  - Malabsorption [Unknown]
